FAERS Safety Report 6880243-8 (Version None)
Quarter: 2010Q3

REPORT INFORMATION
  Report Type: 
  Country: None (occurrence: None)
  Receive Date: 20100728
  Receipt Date: 20100715
  Transmission Date: 20110219
  Serious: Yes (Death, Other)
  Sender: FDA-Public Use
  Company Number: JP-PFIZER INC-2010084889

PATIENT
  Age: 82 Year
  Sex: Male

DRUGS (16)
  1. ZYVOX [Suspect]
     Indication: SEPSIS
     Dosage: 600 MG, 2X/DAY
     Route: 041
     Dates: start: 20100531, end: 20100610
  2. GASTER [Suspect]
     Indication: GASTRITIS
     Dosage: 20 MG, 1X/DAY
     Route: 041
     Dates: start: 20100530, end: 20100609
  3. FUNGUARD [Suspect]
     Indication: FUNGAL INFECTION
     Dosage: 75 MG, 1X/DAY
     Route: 041
     Dates: start: 20100601, end: 20100611
  4. VENECTOMIN [Concomitant]
     Indication: CARDIAC FAILURE CONGESTIVE
     Dosage: 200 MG, 2X/DAY
     Route: 042
     Dates: start: 20100501, end: 20100615
  5. DOPMIN K [Concomitant]
     Indication: BLOOD PRESSURE MANAGEMENT
     Dosage: UNK
     Route: 041
     Dates: start: 20100501, end: 20100616
  6. LASIX [Concomitant]
     Indication: CARDIAC FAILURE CONGESTIVE
     Dosage: 40 MG, 3X/DAY
     Route: 042
     Dates: start: 20100503
  7. PRIMPERAN TAB [Concomitant]
     Indication: NAUSEA
     Dosage: 20 MG, 1X/DAY
     Route: 041
     Dates: start: 20100509, end: 20100616
  8. ROCEPHIN [Concomitant]
     Indication: SEPSIS
     Dosage: 2 G, 1X/DAY
     Route: 041
     Dates: start: 20100526, end: 20100528
  9. HEPARIN SODIUM [Concomitant]
     Indication: ATRIAL FIBRILLATION
     Dosage: 10000 IU, 1X/DAY
     Route: 041
     Dates: start: 20100530, end: 20100606
  10. VANCOMYCIN [Concomitant]
     Indication: SEPSIS
     Dosage: 1000 MG, 2X/DAY
     Route: 041
     Dates: start: 20100528, end: 20100531
  11. BROACT [Concomitant]
     Indication: SEPSIS
     Dosage: 2 G, 1X/DAY
     Route: 041
     Dates: start: 20100530, end: 20100531
  12. CLIDAMACIN [Concomitant]
     Indication: SEPSIS
     Dosage: 600 MG, 3X/DAY
     Route: 041
     Dates: start: 20100530, end: 20100531
  13. SOL-MELCORT [Concomitant]
     Indication: INTERSTITIAL LUNG DISEASE
     Dosage: 1000 MG, 1X/DAY
     Route: 041
     Dates: start: 20100531, end: 20100602
  14. NORADRENALINE [Concomitant]
     Indication: BLOOD PRESSURE MANAGEMENT
     Dosage: UNK
     Route: 041
     Dates: start: 20100601, end: 20100616
  15. PREDONINE [Concomitant]
     Indication: INTERSTITIAL LUNG DISEASE
     Dosage: 40 MG, 1X/DAY
     Route: 041
     Dates: start: 20100603, end: 20100609
  16. PREDONINE [Concomitant]
     Dosage: 30 MG, 1X/DAY
     Route: 041
     Dates: start: 20100610, end: 20100615

REACTIONS (4)
  - ANAEMIA [None]
  - CARDIAC FAILURE [None]
  - PLATELET COUNT DECREASED [None]
  - WHITE BLOOD CELL COUNT DECREASED [None]
